FAERS Safety Report 10246662 (Version 1)
Quarter: 2014Q2

REPORT INFORMATION
  Report Type: Spontaneous
  Country: IT (occurrence: IT)
  Receive Date: 20140619
  Receipt Date: 20140619
  Transmission Date: 20141212
  Serious: Yes (Other)
  Sender: FDA-Public Use
  Company Number: IT-MYLANLABS-2014S1013822

PATIENT
  Age: 78 Year
  Sex: Female

DRUGS (6)
  1. CITALOPRAM [Suspect]
     Indication: DEPRESSION
     Dosage: 1 DF DAILY
     Route: 048
     Dates: start: 20131201, end: 20140107
  2. CO EFFERALGAN [Suspect]
     Indication: BACK PAIN
     Dosage: 2 DF TOTAL
     Route: 048
     Dates: start: 20140107, end: 20140107
  3. STILNOX [Suspect]
     Indication: INSOMNIA
     Dosage: 1 DF DAILY
     Route: 048
     Dates: start: 20140101, end: 20140107
  4. PLACTIDIL [Concomitant]
     Indication: PRODUCT USED FOR UNKNOWN INDICATION
     Route: 048
  5. ARVENUM [Concomitant]
     Indication: PRODUCT USED FOR UNKNOWN INDICATION
     Route: 048
  6. LANSOPRAZOLE [Concomitant]
     Indication: PRODUCT USED FOR UNKNOWN INDICATION
     Route: 048

REACTIONS (2)
  - Head injury [Recovering/Resolving]
  - Vertigo [Recovering/Resolving]
